FAERS Safety Report 15062078 (Version 1)
Quarter: 2018Q2

REPORT INFORMATION
  Report Type: Spontaneous
  Country: US (occurrence: US)
  Receive Date: 20180625
  Receipt Date: 20180625
  Transmission Date: 20180711
  Serious: No
  Sender: FDA-Public Use
  Company Number: US-009507513-1806USA006833

PATIENT
  Age: 37 Year
  Sex: Female
  Weight: 63.49 kg

DRUGS (1)
  1. NEXPLANON [Suspect]
     Active Substance: ETONOGESTREL
     Indication: CONTRACEPTION
     Dosage: 3 YEARS IMPLANT, INSIDE THE LEFT ARM
     Route: 059
     Dates: start: 20180320

REACTIONS (4)
  - Menorrhagia [Unknown]
  - Musculoskeletal chest pain [Unknown]
  - Breast pain [Unknown]
  - Axillary mass [Unknown]

NARRATIVE: CASE EVENT DATE: 20180403
